FAERS Safety Report 9329871 (Version 1)
Quarter: 2013Q2

REPORT INFORMATION
  Report Type: Spontaneous
  Country: US (occurrence: US)
  Receive Date: 20130604
  Receipt Date: 20130604
  Transmission Date: 20140414
  Serious: Yes (Other)
  Sender: FDA-Public Use
  Company Number: US-SANOFI-AVENTIS-2013SA004890

PATIENT
  Sex: Female

DRUGS (4)
  1. LANTUS [Suspect]
     Indication: BLOOD GLUCOSE ABNORMAL
     Route: 058
  2. LANTUS [Suspect]
     Indication: BLOOD GLUCOSE ABNORMAL
     Route: 058
  3. UNSPECIFIED INGREDIENTS [Suspect]
     Indication: BLOOD GLUCOSE ABNORMAL
     Route: 065
  4. ANTI-DIABETICS [Suspect]
     Indication: BLOOD GLUCOSE ABNORMAL
     Route: 065

REACTIONS (4)
  - Hypoglycaemia [Recovered/Resolved with Sequelae]
  - Hypoglycaemic encephalopathy [Recovered/Resolved with Sequelae]
  - Overdose [Recovered/Resolved with Sequelae]
  - Diabetes mellitus inadequate control [Unknown]
